FAERS Safety Report 7135377-X (Version None)
Quarter: 2010Q4

REPORT INFORMATION
  Report Type: 
  Country: None (occurrence: None)
  Receive Date: 20101203
  Receipt Date: 20101125
  Transmission Date: 20110411
  Serious: Yes (Hospitalization)
  Sender: FDA-Public Use
  Company Number: FR-JNJFOC-20101108910

PATIENT
  Sex: Male

DRUGS (9)
  1. RISPERDAL [Suspect]
     Indication: AGGRESSION
     Route: 048
  2. TOPIRAMATE [Suspect]
     Indication: ILL-DEFINED DISORDER
     Dosage: 50 MG IN THE MORNING / 25 MG IN THE EVENING
     Route: 048
  3. VALIUM [Suspect]
     Indication: AGGRESSION
     Route: 048
  4. ATARAX [Suspect]
     Indication: AGGRESSION
     Route: 048
  5. ANDROCUR [Concomitant]
     Route: 048
  6. LARGACTIL [Concomitant]
     Route: 065
  7. LARGACTIL [Concomitant]
     Indication: AGITATION
     Route: 030
  8. THERALENE [Concomitant]
     Indication: INSOMNIA
     Route: 048
  9. DAFALGAN [Concomitant]
     Indication: PAIN
     Route: 065

REACTIONS (12)
  - BACK PAIN [None]
  - BLOOD CREATINE PHOSPHOKINASE INCREASED [None]
  - CYTOLYTIC HEPATITIS [None]
  - EXTRAPYRAMIDAL DISORDER [None]
  - LEUKOCYTOSIS [None]
  - MENTAL DISORDER [None]
  - MUSCLE RIGIDITY [None]
  - OVERDOSE [None]
  - PSYCHOMOTOR SKILLS IMPAIRED [None]
  - PYREXIA [None]
  - SOMNOLENCE [None]
  - TACHYCARDIA [None]
